FAERS Safety Report 14195484 (Version 1)
Quarter: 2017Q4

REPORT INFORMATION
  Report Type: Report from Study
  Country: IN (occurrence: IN)
  Receive Date: 20171116
  Receipt Date: 20171116
  Transmission Date: 20180321
  Serious: Yes (Death, Hospitalization)
  Sender: FDA-Public Use
  Company Number: IN-BAYER-2017-165808

PATIENT
  Age: 63 Year
  Sex: Female

DRUGS (1)
  1. NEXAVAR [Suspect]
     Active Substance: SORAFENIB
     Indication: HEPATOCELLULAR CARCINOMA
     Dosage: 200 MG, UNK
     Route: 048
     Dates: start: 20160526, end: 201704

REACTIONS (6)
  - Abdominal pain upper [None]
  - Loss of consciousness [None]
  - Hepatocellular carcinoma [Fatal]
  - Diarrhoea [None]
  - Intra-abdominal fluid collection [Unknown]
  - Vomiting [None]

NARRATIVE: CASE EVENT DATE: 20170930
